FAERS Safety Report 5940918-1 (Version None)
Quarter: 2008Q4

REPORT INFORMATION
  Report Type: 
  Country: None (occurrence: None)
  Receive Date: 20081031
  Receipt Date: 20081023
  Transmission Date: 20090506
  Serious: Yes (Other)
  Sender: FDA-Public Use
  Company Number: 2008SP020933

PATIENT
  Age: 64 Year
  Sex: Male

DRUGS (16)
  1. NOXAFIL [Suspect]
     Indication: FUNGAL INFECTION
     Dosage: 400 MG; BID; PO, 200 MG; QID; PO, 300 MG; QID; PO, 400 MG; QID; PO
     Route: 048
     Dates: start: 20080731
  2. NOXAFIL [Suspect]
     Indication: FUNGAL INFECTION
     Dosage: 400 MG; BID; PO, 200 MG; QID; PO, 300 MG; QID; PO, 400 MG; QID; PO
     Route: 048
     Dates: start: 20080829
  3. NOXAFIL [Suspect]
     Indication: FUNGAL INFECTION
     Dosage: 400 MG; BID; PO, 200 MG; QID; PO, 300 MG; QID; PO, 400 MG; QID; PO
     Route: 048
     Dates: start: 20080912
  4. NOXAFIL [Suspect]
     Indication: FUNGAL INFECTION
     Dosage: 400 MG; BID; PO, 200 MG; QID; PO, 300 MG; QID; PO, 400 MG; QID; PO
     Route: 048
     Dates: start: 20080929
  5. CANCIDAS [Concomitant]
  6. SANDIMMUNE [Concomitant]
  7. CELLCEPT [Concomitant]
  8. PREDNISONE [Concomitant]
  9. URSO FALK [Concomitant]
  10. BACTRIM DS [Concomitant]
  11. VALCYTE [Concomitant]
  12. PANTOZOL [Concomitant]
  13. NORVASC [Concomitant]
  14. TRIATEC [Concomitant]
  15. POTASSIUM CHLORIDE [Concomitant]
  16. MG [Concomitant]

REACTIONS (2)
  - OVERDOSE [None]
  - POLYNEUROPATHY [None]
